FAERS Safety Report 7907819-0 (Version None)
Quarter: 2011Q4

REPORT INFORMATION
  Report Type: 
  Country: None (occurrence: None)
  Receive Date: 20111110
  Receipt Date: 20111109
  Transmission Date: 20120403
  Serious: Yes (Disabling)
  Sender: FDA-Public Use
  Company Number: CA-PFIZER INC-2011011588

PATIENT
  Age: 49 Year
  Sex: Male
  Weight: 72.562 kg

DRUGS (6)
  1. ZANTAC [Concomitant]
     Indication: GASTROOESOPHAGEAL REFLUX DISEASE
     Dosage: 75 MG, 1X/DAY
     Route: 048
     Dates: start: 20101130, end: 20110205
  2. DIOVAN [Concomitant]
     Indication: HYPERTENSION
     Dosage: 80 MG, 1X/DAY AS NEEDED
     Route: 048
     Dates: start: 20101123
  3. PANTOPRAZOLE [Concomitant]
     Indication: GASTROOESOPHAGEAL REFLUX DISEASE
     Dosage: 40 MG, 1X/DAY
     Route: 048
     Dates: start: 20110206
  4. SUTENT [Suspect]
     Indication: RENAL CELL CARCINOMA
     Dosage: 50 MG, 1X/DAY, 4 WEEKS ON, 2 WEEKS OFF, 5 TREATMENTS (OUT OF 17 EXPECTED)
     Route: 048
     Dates: start: 20101115
  5. ZANTAC [Concomitant]
     Dosage: 150 MG, 1X/DAY
     Route: 048
     Dates: start: 20101130, end: 20110205
  6. PANTOPRAZOLE [Concomitant]
     Indication: OESOPHAGEAL SPASM

REACTIONS (20)
  - PALMAR-PLANTAR ERYTHRODYSAESTHESIA SYNDROME [None]
  - SKIN DISCOLOURATION [None]
  - AGEUSIA [None]
  - REFLUX GASTRITIS [None]
  - HYPERTENSION [None]
  - HAIR COLOUR CHANGES [None]
  - VISUAL IMPAIRMENT [None]
  - FATIGUE [None]
  - POLLAKIURIA [None]
  - WEIGHT DECREASED [None]
  - RASH [None]
  - HAEMORRHAGE [None]
  - EPISTAXIS [None]
  - DIARRHOEA [None]
  - STOMATITIS [None]
  - DIZZINESS [None]
  - OESOPHAGEAL SPASM [None]
  - NEUROLOGICAL DECOMPENSATION [None]
  - DYSURIA [None]
  - NAUSEA [None]
